FAERS Safety Report 4691731-7 (Version None)
Quarter: 2005Q2

REPORT INFORMATION
  Report Type: 
  Country: None (occurrence: None)
  Receive Date: 20050616
  Receipt Date: 20050607
  Transmission Date: 20051028
  Serious: Yes (Other)
  Sender: FDA-Public Use
  Company Number: US-BRISTOL-MYERS SQUIBB COMPANY-12995973

PATIENT
  Age: 51 Year
  Sex: Male

DRUGS (2)
  1. ABILIFY [Suspect]
     Dosage: INCREASED TO 15 MG/DAY, THEN DISCONTINUED
  2. NEXIUM [Concomitant]

REACTIONS (2)
  - CARDIOMYOPATHY [None]
  - CORONARY ARTERY OCCLUSION [None]
